FAERS Safety Report 5754712-8 (Version None)
Quarter: 2008Q2

REPORT INFORMATION
  Report Type: 
  Country: None (occurrence: None)
  Receive Date: 20080530
  Receipt Date: 20080520
  Transmission Date: 20081010
  Serious: Yes (Other)
  Sender: FDA-Public Use
  Company Number: JP-PFIZER INC-2008043986

PATIENT
  Age: 53 Year
  Sex: Male

DRUGS (3)
  1. GABAPEN [Suspect]
     Indication: PAIN
     Dosage: DAILY DOSE:1800MG
     Route: 048
  2. TRYPTANOL [Suspect]
     Indication: PAIN
     Dosage: DAILY DOSE:50MG
     Route: 048
  3. CONIEL [Concomitant]

REACTIONS (4)
  - BLOOD CHOLESTEROL INCREASED [None]
  - BLOOD TRIGLYCERIDES INCREASED [None]
  - GAMMA-GLUTAMYLTRANSFERASE INCREASED [None]
  - PROTEINURIA [None]
